FAERS Safety Report 4852121-7 (Version None)
Quarter: 2005Q4

REPORT INFORMATION
  Report Type: 
  Country: None (occurrence: None)
  Receive Date: 20051209
  Receipt Date: 20051127
  Transmission Date: 20060501
  Serious: Yes (Other)
  Sender: FDA-Public Use
  Company Number: 2005161306

PATIENT
  Age: 28 Year
  Sex: Male

DRUGS (1)
  1. VIAGRA [Suspect]
     Indication: ERECTILE DYSFUNCTION
     Dosage: 50 MG

REACTIONS (3)
  - BLINDNESS UNILATERAL [None]
  - CYANOPSIA [None]
  - OPTIC NEUROPATHY [None]
